FAERS Safety Report 8532802-4 (Version None)
Quarter: 2012Q3

REPORT INFORMATION
  Report Type: 
  Country: None (occurrence: None)
  Receive Date: 20120724
  Receipt Date: 20120720
  Transmission Date: 20120928
  Serious: Yes (Death)
  Sender: FDA-Public Use
  Company Number: PHHY2012NL062929

PATIENT
  Sex: Female

DRUGS (3)
  1. ZOMETA [Suspect]
     Dosage: 4MG/ 100MG,1 X 28 DAYS
     Route: 042
     Dates: start: 20120626, end: 20120626
  2. ZOMETA [Suspect]
     Indication: BREAST CANCER METASTATIC
     Dosage: 4MG/ 100MG,1 X 28 DAYS
     Route: 042
     Dates: start: 20120112
  3. ZOMETA [Suspect]
     Dosage: 4MG/ 100MG,1 X 28 DAYS
     Route: 042
     Dates: start: 20120531

REACTIONS (1)
  - DEATH [None]
